FAERS Safety Report 17483308 (Version 1)
Quarter: 2020Q1

REPORT INFORMATION
  Report Type: Spontaneous
  Country: US (occurrence: US)
  Receive Date: 20200219
  Receipt Date: 20200219
  Transmission Date: 20200409
  Serious: Yes (Other)
  Sender: FDA-Public Use
  Company Number: None

PATIENT
  Age: 47 Year
  Sex: Female
  Weight: 76.2 kg

DRUGS (1)
  1. ALLOPURINOL 200MG [Suspect]
     Active Substance: ALLOPURINOL
     Route: 048
     Dates: start: 201604, end: 201605

REACTIONS (2)
  - Rash [None]
  - Urticaria [None]

NARRATIVE: CASE EVENT DATE: 20160426
